FAERS Safety Report 5340780-4 (Version None)
Quarter: 2007Q2

REPORT INFORMATION
  Report Type: 
  Country: None (occurrence: None)
  Receive Date: 20070405
  Receipt Date: 20070130
  Transmission Date: 20071010
  Serious: No
  Sender: FDA-Public Use
  Company Number: US200701006124

PATIENT
  Age: 59 Year
  Sex: Male

DRUGS (1)
  1. CYMBALTA [Suspect]
     Indication: PAIN
     Dosage: 40 MG, DAILY (1/D)

REACTIONS (5)
  - DISTURBANCE IN ATTENTION [None]
  - HEADACHE [None]
  - LIBIDO DECREASED [None]
  - TREMOR [None]
  - VISUAL DISTURBANCE [None]
